FAERS Safety Report 25353501 (Version 3)
Quarter: 2025Q2

REPORT INFORMATION
  Report Type: Report from Study
  Country: US (occurrence: US)
  Receive Date: 20250523
  Receipt Date: 20250612
  Transmission Date: 20250716
  Serious: No
  Sender: MALLINCKRODT
  Company Number: US-MALLINCKRODT-MNK202502941

PATIENT
  Age: 66 Year
  Sex: Female

DRUGS (1)
  1. CORTICOTROPIN [Suspect]
     Active Substance: CORTICOTROPIN
     Indication: Dry eye
     Dates: start: 20250508, end: 20250605

REACTIONS (6)
  - Urticaria [Unknown]
  - Injection site erythema [Unknown]
  - Injection site induration [Unknown]
  - Injection site warmth [Unknown]
  - Injection site pruritus [Unknown]
  - Rash [Unknown]

NARRATIVE: CASE EVENT DATE: 20250501
